FAERS Safety Report 8435711-4 (Version None)
Quarter: 2012Q2

REPORT INFORMATION
  Report Type: 
  Country: None (occurrence: None)
  Receive Date: 20120614
  Receipt Date: 20120605
  Transmission Date: 20120825
  Serious: Yes (Hospitalization, Other)
  Sender: FDA-Public Use
  Company Number: KR-JNJFOC-20070403173

PATIENT
  Sex: Female
  Weight: 55.3 kg

DRUGS (44)
  1. METHOTREXATE [Suspect]
     Dosage: WEEK 14  8 CAPSULES
     Route: 048
     Dates: start: 20070103
  2. METHOTREXATE [Suspect]
     Dosage: WEEK 18  8 CAPSULES
     Route: 048
     Dates: start: 20070131
  3. METHOTREXATE [Suspect]
     Dosage: WEEK 19  8 CAPSULES
     Route: 048
     Dates: start: 20070207
  4. METHOTREXATE [Suspect]
     Dosage: WEEK 9  8 CAPSULES
     Route: 048
     Dates: start: 20061129
  5. METHOTREXATE [Suspect]
     Dosage: WEEK 1  4 CAPSULES
     Route: 048
     Dates: start: 20061004
  6. METHOTREXATE [Suspect]
     Dosage: WEEK 15  8 CAPSULES
     Route: 048
     Dates: start: 20070110
  7. ULTRACET [Concomitant]
     Indication: RHEUMATOID ARTHRITIS
     Route: 048
     Dates: start: 20060414
  8. OMEPRAZOLE [Concomitant]
     Route: 048
     Dates: start: 20070316
  9. METHOTREXATE [Suspect]
     Indication: RHEUMATOID ARTHRITIS
     Dosage: WEEK 11  8 CAPSULES
     Route: 048
     Dates: start: 20061213
  10. METHOTREXATE [Suspect]
     Dosage: WEEK 13  8 CAPSULES
     Route: 048
     Dates: start: 20061227
  11. METHOTREXATE [Suspect]
     Dosage: WEEK 23  8 CAPSULES
     Route: 048
     Dates: start: 20070307
  12. METHOTREXATE [Suspect]
     Dosage: WEEK 24  8 CAPSULES
     Route: 048
     Dates: start: 20070314
  13. METHOTREXATE [Suspect]
     Dosage: WEEK 25  8 CAPSULES
     Route: 048
     Dates: start: 20070321
  14. METHOTREXATE [Suspect]
     Dosage: WEEK 27  8 CAPSULES
     Route: 048
     Dates: start: 20070404
  15. METHOTREXATE [Suspect]
     Dosage: WEEK 3  4 CAPSULES
     Route: 048
     Dates: start: 20061018
  16. METHOTREXATE [Suspect]
     Dosage: WEEK 21  8 CAPSULES
     Route: 048
     Dates: start: 20070221
  17. CELECOXIB [Concomitant]
     Indication: RHEUMATOID ARTHRITIS
     Route: 048
     Dates: start: 20060414
  18. LEVOSULPIRIDE [Concomitant]
     Route: 048
     Dates: start: 20070501
  19. GOLIMUMAB [Suspect]
     Indication: RHEUMATOID ARTHRITIS
     Route: 058
     Dates: start: 20070413
  20. METHOTREXATE [Suspect]
     Dosage: WEEK 12  8 CAPSULES
     Route: 048
     Dates: start: 20061220
  21. METHOTREXATE [Suspect]
     Route: 048
     Dates: start: 20070412
  22. METHOTREXATE [Suspect]
     Dosage: WEEK 7  6 CAPSULES
     Route: 048
     Dates: start: 20061115
  23. METHOTREXATE [Suspect]
     Dosage: WEEK 4  6 CAPSULES
     Route: 048
     Dates: start: 20061025
  24. METHOTREXATE [Suspect]
     Dosage: WEEK 2  4 CAPSULES
     Route: 048
     Dates: start: 20061011
  25. ACETAMINOPHEN [Concomitant]
     Route: 048
     Dates: start: 20070419, end: 20070421
  26. GOLIMUMAB [Suspect]
     Route: 058
  27. METHOTREXATE [Suspect]
     Dosage: WEEK 16  8 CAPSULES
     Route: 048
     Dates: start: 20070117
  28. METHOTREXATE [Suspect]
     Dosage: WEEK10  8 CAPSULES
     Route: 048
     Dates: start: 20061206
  29. METHOTREXATE [Suspect]
     Dosage: WEEK 6  6 CAPSULES
     Route: 048
     Dates: start: 20061108
  30. PYRIDOXINE HYDROCHLORIDE [Concomitant]
     Indication: PROPHYLAXIS
     Route: 048
     Dates: start: 20060901, end: 20070508
  31. LEUCOVORIN CALCIUM [Concomitant]
     Indication: PROPHYLAXIS
     Route: 048
     Dates: start: 20060926
  32. KETOPROFEN [Concomitant]
     Dates: start: 20070420
  33. METHOTREXATE [Suspect]
     Dosage: WEEK 17  8 CAPSULES
     Route: 048
     Dates: start: 20070124
  34. METHOTREXATE [Suspect]
     Dosage: WEEK 5  6 CAPSULES
     Route: 048
     Dates: start: 20061101
  35. PREDNISOLONE [Concomitant]
     Indication: RHEUMATOID ARTHRITIS
     Route: 048
     Dates: start: 20060814
  36. ISONIAZID [Concomitant]
     Indication: ANTIBIOTIC PROPHYLAXIS
     Route: 048
     Dates: start: 20060901, end: 20090508
  37. METHOTREXATE [Concomitant]
     Route: 048
     Dates: start: 20070504
  38. METHOTREXATE [Suspect]
     Dosage: WEEK 20  8 CAPSULES
     Route: 048
     Dates: start: 20070214
  39. METHOTREXATE [Suspect]
     Dosage: WEEK 22  8 CAPSULES
     Route: 048
     Dates: start: 20070228
  40. METHOTREXATE [Suspect]
     Dosage: WEEK 8  8 CAPSULES
     Route: 048
     Dates: start: 20061122
  41. LANSOPRAZOLE [Concomitant]
     Indication: GASTROINTESTINAL DISORDER THERAPY
     Route: 048
     Dates: start: 20070416, end: 20070508
  42. METHOTREXATE [Suspect]
     Dosage: WEEK 26  8 CAPSULES
     Route: 048
     Dates: start: 20070328
  43. METHOTREXATE [Suspect]
     Route: 048
     Dates: start: 20070418
  44. METHOTREXATE [Suspect]
     Dosage: WEEK 0   4 CAPSULES
     Route: 048
     Dates: start: 20060927

REACTIONS (2)
  - THYROID CANCER [None]
  - LUNG NEOPLASM [None]
